FAERS Safety Report 8963852 (Version 6)
Quarter: 2014Q2

REPORT INFORMATION
  Report Type: Spontaneous
  Country: US (occurrence: US)
  Receive Date: 20121214
  Receipt Date: 20140415
  Transmission Date: 20141212
  Serious: Yes (Other)
  Sender: FDA-Public Use
  Company Number: US-PFIZER INC-2012314704

PATIENT
  Age: 55 Year
  Sex: Male
  Weight: 90.7 kg

DRUGS (4)
  1. DILANTIN [Suspect]
     Indication: CONVULSION
     Dosage: THREE CAPSULES OF 100 MG IN A DAY
     Route: 048
     Dates: start: 1993
  2. ETHOSUXIMIDE [Suspect]
     Indication: CONVULSION
     Dosage: 250 MG, 3X/DAY
     Route: 048
     Dates: start: 1993
  3. KLONOPIN [Suspect]
     Indication: CONVULSION
     Dosage: 1 MG, 2X/DAY
     Dates: start: 1993
  4. ZARONTIN [Concomitant]
     Dosage: UNK

REACTIONS (5)
  - Spinal osteoarthritis [Unknown]
  - Bone loss [Unknown]
  - Barbiturates positive [Unknown]
  - Drug ineffective [Unknown]
  - Mood swings [Unknown]
